FAERS Safety Report 15793494 (Version 2)
Quarter: 2019Q1

REPORT INFORMATION
  Report Type: Spontaneous
  Country: US (occurrence: US)
  Receive Date: 20190107
  Receipt Date: 20190207
  Transmission Date: 20190417
  Serious: No
  Sender: FDA-Public Use
  Company Number: US-PFIZER INC-2019005549

PATIENT
  Age: 70 Year
  Sex: Male

DRUGS (1)
  1. ZITHROMAX [Suspect]
     Active Substance: AZITHROMYCIN DIHYDRATE
     Indication: BRONCHITIS
     Dosage: UNK
     Route: 048
     Dates: start: 2000

REACTIONS (2)
  - Drug hypersensitivity [Unknown]
  - Dyspnoea [Recovered/Resolved]
